FAERS Safety Report 6928665-0 (Version None)
Quarter: 2010Q3

REPORT INFORMATION
  Report Type: 
  Country: None (occurrence: None)
  Receive Date: 20100817
  Receipt Date: 20100812
  Transmission Date: 20110219
  Serious: Yes (Congenital Anomaly, Other)
  Sender: FDA-Public Use
  Company Number: A0859496A

PATIENT
  Sex: Female
  Weight: 1 kg

DRUGS (3)
  1. EPIVIR [Suspect]
     Indication: ANTIRETROVIRAL THERAPY
  2. KALETRA [Suspect]
     Indication: ANTIRETROVIRAL THERAPY
  3. TRUVADA [Suspect]
     Indication: ANTIRETROVIRAL THERAPY

REACTIONS (4)
  - ATRIOVENTRICULAR BLOCK COMPLETE [None]
  - CARDIOMYOPATHY [None]
  - DRUG EXPOSURE DURING PREGNANCY [None]
  - PREMATURE BABY [None]
